FAERS Safety Report 19311042 (Version 1)
Quarter: 2021Q2

REPORT INFORMATION
  Report Type: Spontaneous
  Country: DE (occurrence: DE)
  Receive Date: 20210526
  Receipt Date: 20210526
  Transmission Date: 20210717
  Serious: Yes (Hospitalization, Other)
  Sender: FDA-Public Use
  Company Number: DE-SUN PHARMACEUTICAL INDUSTRIES LTD-2021RR-298229

PATIENT
  Age: 25 Year
  Sex: Female
  Weight: 75 kg

DRUGS (9)
  1. NITRAZEPAM [Suspect]
     Active Substance: NITRAZEPAM
     Indication: PRODUCT USED FOR UNKNOWN INDICATION
     Dosage: UNK
     Route: 065
  2. PHENYLEPHRINE [Suspect]
     Active Substance: PHENYLEPHRINE HYDROCHLORIDE
     Indication: RESUSCITATION
     Route: 065
  3. ALPRAZOLAM. [Suspect]
     Active Substance: ALPRAZOLAM
     Indication: ANXIETY
     Dosage: UNK
     Route: 065
  4. NORADRENALINE [Interacting]
     Active Substance: NOREPINEPHRINE
     Indication: RESUSCITATION
     Route: 065
  5. MODAFINIL. [Interacting]
     Active Substance: MODAFINIL
     Indication: PRODUCT USED FOR UNKNOWN INDICATION
     Dosage: UNK
     Route: 065
  6. AMPHETAMINE [Interacting]
     Active Substance: AMPHETAMINE
     Indication: PRODUCT USED FOR UNKNOWN INDICATION
     Route: 065
  7. GABAPENTIN. [Suspect]
     Active Substance: GABAPENTIN
     Indication: PRODUCT USED FOR UNKNOWN INDICATION
     Dosage: UNK
     Route: 065
  8. METHYLPHENIDATE. [Interacting]
     Active Substance: METHYLPHENIDATE
     Indication: PSYCHOMOTOR HYPERACTIVITY
     Route: 065
  9. ADRENALINE [Suspect]
     Active Substance: EPINEPHRINE
     Indication: RESUSCITATION
     Route: 065

REACTIONS (3)
  - Drug ineffective [Unknown]
  - Drug interaction [Unknown]
  - Delirium [Unknown]
